FAERS Safety Report 9181977 (Version 1)
Quarter: 2013Q1

REPORT INFORMATION
  Report Type: Spontaneous
  Country: SA (occurrence: SA)
  Receive Date: 20130322
  Receipt Date: 20130322
  Transmission Date: 20140127
  Serious: Yes (Hospitalization, Other)
  Sender: FDA-Public Use
  Company Number: SA-JNJFOC-2000024582SA

PATIENT
  Age: 21 Month
  Sex: Male
  Weight: 16 kg

DRUGS (3)
  1. MOTRIN [Suspect]
     Indication: ACCIDENTAL EXPOSURE TO PRODUCT
     Dosage: FREQUENCY TEXT: SINGLE DAILY DOSE TEXT: 8 GRAM, SINGLE DAILY DOSE QTY: 8 G
     Route: 048
  2. SODIUM POLYSTYRENE SULFONATE [Suspect]
     Indication: PRODUCT USED FOR UNKNOWN INDICATION
  3. FUROSEMIDE [Suspect]
     Indication: PRODUCT USED FOR UNKNOWN INDICATION
     Dosage: DAILY DOSE TEXT: 15 MILLIGRAM DAILY DOSE QTY: 15 MG
     Route: 042

REACTIONS (12)
  - Overdose [Recovered/Resolved]
  - Renal failure acute [Recovered/Resolved]
  - Metabolic acidosis [Recovered/Resolved]
  - Hypocalcaemia [Recovered/Resolved]
  - Hypomagnesaemia [Recovered/Resolved]
  - Convulsion [Recovered/Resolved]
  - Somnolence [Recovering/Resolving]
  - Tachypnoea [Recovering/Resolving]
  - Agitation [Recovering/Resolving]
  - Consciousness fluctuating [Recovering/Resolving]
  - Nystagmus [Recovering/Resolving]
  - Albuminuria [Recovered/Resolved]
